FAERS Safety Report 5329404-X (Version None)
Quarter: 2007Q2

REPORT INFORMATION
  Report Type: 
  Country: None (occurrence: None)
  Receive Date: 20070223
  Receipt Date: 20060808
  Transmission Date: 20071010
  Serious: Yes (Other)
  Sender: FDA-Public Use
  Company Number: WAES 0512USA03160

PATIENT
  Sex: Male

DRUGS (17)
  1. ZOCOR [Suspect]
     Dosage: 20 MG/PO
     Route: 048
     Dates: start: 20030202
  2. ALTACE [Concomitant]
  3. ASACOL [Concomitant]
  4. AVAPRO [Concomitant]
  5. CELEBREX [Concomitant]
  6. GUAIFENEX [Concomitant]
  7. HUMALOG [Concomitant]
  8. ACETAMINOPHEN AND HYDROCODONE BITARTRATE [Concomitant]
  9. LANTUS [Concomitant]
  10. LEVAQUIN [Concomitant]
  11. NEXIUM [Concomitant]
  12. NITROSTAT [Concomitant]
  13. ATENOLOL [Concomitant]
  14. FAMOTIDINE [Concomitant]
  15. FUROSEMIDE [Concomitant]
  16. ISOSORBIDE [Concomitant]
  17. METHOCARBAMOL [Concomitant]

REACTIONS (1)
  - RHABDOMYOLYSIS [None]
